FAERS Safety Report 7786787-9 (Version None)
Quarter: 2011Q3

REPORT INFORMATION
  Report Type: 
  Country: None (occurrence: None)
  Receive Date: 20110929
  Receipt Date: 20110921
  Transmission Date: 20111222
  Serious: Yes (Hospitalization)
  Sender: FDA-Public Use
  Company Number: FR-B.I. PHARMACEUTICALS,INC./RIDGEFIELD-2011-FF-00195FF

PATIENT
  Sex: Female
  Weight: 108 kg

DRUGS (1)
  1. PRADAXA [Suspect]
     Route: 048

REACTIONS (4)
  - INFECTED SKIN ULCER [None]
  - SEPSIS [None]
  - PATELLA FRACTURE [None]
  - IMPAIRED HEALING [None]
